FAERS Safety Report 8486030 (Version 3)
Quarter: 2012Q4

REPORT INFORMATION
  Report Type: 
  Country: GB (occurrence: GB)
  Receive Date: 20120401
  Receipt Date: 20120917
  Transmission Date: 20130627
  Serious: Yes (Other)
  Sender: FDA-Public Use
  Company Number: PHFR2012GB001975

PATIENT
  Age: 63 None
  Sex: Male

DRUGS (1)
  1. CLOZARIL [Suspect]
     Indication: SCHIZOPHRENIA
     Dosage: 375 mg, daily
     Route: 048
     Dates: start: 19900813

REACTIONS (1)
  - Prostate cancer [Not Recovered/Not Resolved]
